FAERS Safety Report 10074150 (Version 2)
Quarter: 2014Q2

REPORT INFORMATION
  Report Type: Report from Study
  Country: US (occurrence: US)
  Receive Date: 20140411
  Receipt Date: 20140421
  Transmission Date: 20141212
  Serious: Yes (Hospitalization, Other)
  Sender: FDA-Public Use
  Company Number: US-MERCK-1404USA004340

PATIENT
  Age: 70 Year
  Sex: Male
  Weight: 82.7 kg

DRUGS (2)
  1. VORINOSTAT [Suspect]
     Indication: DIFFUSE LARGE B-CELL LYMPHOMA
     Dosage: 200 MG, QD, D1-10 EVERY 28 DAYS
     Route: 048
     Dates: start: 20140224, end: 20140305
  2. VELCADE [Suspect]
     Dosage: 1.0 MG/M2, D2 AND D8, EVERY 28 DAYS
     Route: 042
     Dates: start: 20140225, end: 20140303

REACTIONS (5)
  - Pneumonia viral [Recovered/Resolved]
  - Metapneumovirus infection [Recovered/Resolved]
  - Pneumonia streptococcal [Recovered/Resolved]
  - Respiratory failure [Recovered/Resolved]
  - Hypoxia [Recovered/Resolved]
